FAERS Safety Report 8269706-0 (Version None)
Quarter: 2012Q2

REPORT INFORMATION
  Report Type: 
  Country: None (occurrence: None)
  Receive Date: 20120406
  Receipt Date: 20120329
  Transmission Date: 20120825
  Serious: Yes (Other)
  Sender: FDA-Public Use
  Company Number: IMP_05826_2012

PATIENT
  Sex: Female

DRUGS (2)
  1. CABERGOLINE [Suspect]
     Indication: PROLACTINOMA
     Dosage: (2 MG PER WEEK), (10 MG PER WEEK)
  2. HCG (UNKNOWN) [Concomitant]

REACTIONS (5)
  - TREATMENT FAILURE [None]
  - MATERNAL EXPOSURE DURING PREGNANCY [None]
  - TWIN PREGNANCY [None]
  - CAESAREAN SECTION [None]
  - DEATH NEONATAL [None]
